FAERS Safety Report 9682781 (Version 3)
Quarter: 2015Q3

REPORT INFORMATION
  Report Type: Spontaneous
  Country: US (occurrence: US)
  Receive Date: 20131112
  Receipt Date: 20150810
  Transmission Date: 20151125
  Serious: Yes (Other)
  Sender: FDA-Public Use
  Company Number: PHEH2013US023322

PATIENT
  Sex: Male

DRUGS (1)
  1. VALTURNA [Suspect]
     Active Substance: ALISKIREN HEMIFUMARATE\VALSARTAN
     Indication: PRODUCT USED FOR UNKNOWN INDICATION
     Dosage: 1 DF (150 MG ALIS AND 160 MG VALS), QD
     Route: 065
     Dates: start: 20101011, end: 20120719

REACTIONS (46)
  - Ischaemic cardiomyopathy [Unknown]
  - Injury [Unknown]
  - Hyperlipidaemia [Unknown]
  - Erectile dysfunction [Unknown]
  - Dilatation atrial [Unknown]
  - Diverticulum intestinal [Unknown]
  - Coronary artery disease [Unknown]
  - Skin ulcer [Unknown]
  - Left ventricular hypertrophy [Unknown]
  - Respiratory disorder [Unknown]
  - Vitreous detachment [Unknown]
  - Type 2 diabetes mellitus [Unknown]
  - Myocardial infarction [Unknown]
  - Angina unstable [Unknown]
  - Pain [Unknown]
  - Anhedonia [Unknown]
  - Atelectasis [Unknown]
  - Mediastinal disorder [Unknown]
  - Aortic valve incompetence [Unknown]
  - Tricuspid valve incompetence [Unknown]
  - Insomnia [Unknown]
  - Deafness [Unknown]
  - Chronic kidney disease [Unknown]
  - Mitral valve incompetence [Unknown]
  - Haemorrhoids [Unknown]
  - Retinopathy [Unknown]
  - Cataract [Unknown]
  - Cerebrovascular accident [Unknown]
  - Dyslipidaemia [Unknown]
  - Constipation [Unknown]
  - Neuropathy peripheral [Unknown]
  - Obesity [Unknown]
  - Dizziness [Unknown]
  - Microalbuminuria [Unknown]
  - Alopecia [Unknown]
  - Chest pain [Unknown]
  - Headache [Unknown]
  - Left ventricular failure [Unknown]
  - Blood potassium increased [Unknown]
  - Skin fissures [Unknown]
  - Syncope [Unknown]
  - Thrombocytopenia [Unknown]
  - Hypotension [Unknown]
  - Myocardial ischaemia [Unknown]
  - Renal impairment [Unknown]
  - Hypertension [Unknown]

NARRATIVE: CASE EVENT DATE: 2012
